FAERS Safety Report 4716086-0 (Version None)
Quarter: 2005Q3

REPORT INFORMATION
  Report Type: 
  Country: None (occurrence: None)
  Receive Date: 20050718
  Receipt Date: 20050707
  Transmission Date: 20060218
  Serious: Yes (Hospitalization, Other)
  Sender: FDA-Public Use
  Company Number: AU-JNJFOC-20050701159

PATIENT
  Age: 94 Year
  Sex: Female

DRUGS (4)
  1. RISPERDAL [Suspect]
     Route: 048
  2. RISPERDAL [Suspect]
     Indication: DEMENTIA
     Dosage: (0.5 MG IN THE MORNING AND 1.5 MG AT NIGHT)
     Route: 048
  3. DIURETIC [Concomitant]
     Route: 065
  4. AVANZA [Concomitant]
     Route: 065

REACTIONS (1)
  - CARDIAC FAILURE [None]
